FAERS Safety Report 9857824 (Version 1)
Quarter: 2014Q1

REPORT INFORMATION
  Report Type: Report from Study
  Country: US (occurrence: US)
  Receive Date: 20140131
  Receipt Date: 20140131
  Transmission Date: 20141002
  Serious: Yes (Other)
  Sender: FDA-Public Use
  Company Number: US-BRISTOL-MYERS SQUIBB COMPANY-20079638

PATIENT
  Age: 65 Year
  Sex: Female
  Weight: 81.63 kg

DRUGS (4)
  1. ORENCIA [Suspect]
     Dosage: 1000MG?750MG FOR 1 YEAR?SINCE FEB2013
     Route: 042
     Dates: start: 2007
  2. PREDNISONE [Concomitant]
  3. SYNTHROID [Concomitant]
  4. ALEVE [Concomitant]
     Indication: OSTEOPOROSIS

REACTIONS (5)
  - Joint injury [Unknown]
  - Muscle spasms [Unknown]
  - Blood potassium decreased [Unknown]
  - Weight decreased [Unknown]
  - Drug ineffective [Unknown]
